FAERS Safety Report 20099607 (Version 1)
Quarter: 2021Q4

REPORT INFORMATION
  Report Type: Spontaneous
  Country: US (occurrence: US)
  Receive Date: 20211123
  Receipt Date: 20211123
  Transmission Date: 20220303
  Serious: No
  Sender: FDA-Public Use
  Company Number: US-drreddys-SPO/USA/21/0143822

PATIENT
  Age: 30 Year
  Sex: Female

DRUGS (2)
  1. ZENATANE [Suspect]
     Active Substance: ISOTRETINOIN
     Indication: Product used for unknown indication
     Dosage: RMA ISSUE DATE: 02 JULY 2021 12:00:00 AM AND 06 AUGUST 2021 12:00:00 AM
  2. ACCUTANE [Suspect]
     Active Substance: ISOTRETINOIN
     Indication: Product used for unknown indication
     Dosage: RMA ISSUE DATE: 08 SEPTEMBER 2021 12:00:00 AM AND 06 OCTOBER 2021 12:00:00 AM

REACTIONS (1)
  - Adverse drug reaction [Unknown]
